FAERS Safety Report 16552999 (Version 2)
Quarter: 2019Q3

REPORT INFORMATION
  Report Type: Report from Study
  Country: US (occurrence: US)
  Receive Date: 20190710
  Receipt Date: 20190722
  Transmission Date: 20191004
  Serious: Yes (Other)
  Sender: FDA-Public Use
  Company Number: PHHY2019US153643

PATIENT
  Age: 18 Year
  Sex: Male

DRUGS (5)
  1. KYMRIAH [Suspect]
     Active Substance: TISAGENLECLEUCEL
     Indication: B-CELL TYPE ACUTE LEUKAEMIA
     Dosage: UNK, ONCE/SINGLE
     Route: 041
     Dates: start: 2018
  2. DASATINIB. [Concomitant]
     Active Substance: DASATINIB
     Indication: CHEMOTHERAPY
     Route: 065
  3. IMATINIB. [Concomitant]
     Active Substance: IMATINIB MESYLATE
     Indication: CHEMOTHERAPY
     Route: 065
  4. CYCLOPHOSPHAMIDE. [Concomitant]
     Active Substance: CYCLOPHOSPHAMIDE
     Indication: CHEMOTHERAPY
     Route: 065
  5. FLUDARABINE [Concomitant]
     Active Substance: FLUDARABINE PHOSPHATE
     Indication: CHEMOTHERAPY
     Route: 065

REACTIONS (10)
  - Malignant neoplasm progression [Unknown]
  - Cytomegalovirus infection [Unknown]
  - Hypogammaglobulinaemia [Recovered/Resolved]
  - Treatment failure [Unknown]
  - Neurotoxicity [Recovered/Resolved]
  - Platelet count decreased [Unknown]
  - B-cell type acute leukaemia [Unknown]
  - White blood cell count decreased [Unknown]
  - Depressed level of consciousness [Unknown]
  - Neutrophil count decreased [Recovered/Resolved]
